FAERS Safety Report 11999787 (Version 16)
Quarter: 2020Q3

REPORT INFORMATION
  Report Type: Other
  Country: CA (occurrence: CA)
  Receive Date: 20160204
  Receipt Date: 20200921
  Transmission Date: 20201102
  Serious: Yes (Hospitalization, Other)
  Sender: FDA-Public Use
  Company Number: CA-ROCHE-1618751

PATIENT
  Age: 61 Year
  Sex: Male

DRUGS (21)
  1. RITUXAN [Suspect]
     Active Substance: RITUXIMAB
     Route: 042
     Dates: start: 20180328, end: 20180328
  2. DIPHENHYDRAMINE HCL [Concomitant]
     Active Substance: DIPHENHYDRAMINE HYDROCHLORIDE
     Route: 048
     Dates: start: 20150805
  3. COVERSYL [Concomitant]
     Active Substance: PERINDOPRIL
  4. PREGABALIN. [Concomitant]
     Active Substance: PREGABALIN
  5. AAS [Concomitant]
     Active Substance: ASPIRIN
  6. ACTONEL [Concomitant]
     Active Substance: RISEDRONATE SODIUM
  7. ACETAMINOPHEN. [Concomitant]
     Active Substance: ACETAMINOPHEN
     Route: 048
     Dates: start: 20150805
  8. FOLIC ACID. [Concomitant]
     Active Substance: FOLIC ACID
  9. CLONAZEPAM. [Concomitant]
     Active Substance: CLONAZEPAM
  10. RITUXAN [Suspect]
     Active Substance: RITUXIMAB
     Indication: RHEUMATOID ARTHRITIS
     Dosage: PREVIOUS RITUXAN INFUSION: 25/FEB/2020
     Route: 042
     Dates: start: 20150805
  11. PLAQUENIL [Suspect]
     Active Substance: HYDROXYCHLOROQUINE SULFATE
     Indication: PRODUCT USED FOR UNKNOWN INDICATION
     Route: 065
  12. HYDROMORPHONE [Concomitant]
     Active Substance: HYDROMORPHONE
  13. METHYLPREDNISOLONE. [Concomitant]
     Active Substance: METHYLPREDNISOLONE
     Route: 042
     Dates: start: 20150805
  14. ROSUVASTATIN. [Concomitant]
     Active Substance: ROSUVASTATIN
  15. PREDNISONE. [Concomitant]
     Active Substance: PREDNISONE
  16. DOCUSATE [Concomitant]
     Active Substance: DOCUSATE
  17. ASPIRIN. [Concomitant]
     Active Substance: ASPIRIN
  18. DEXILANT [Concomitant]
     Active Substance: DEXLANSOPRAZOLE
  19. HYDROXYCHLOROQUINE [Concomitant]
     Active Substance: HYDROXYCHLOROQUINE
  20. METHOTREXATE. [Concomitant]
     Active Substance: METHOTREXATE
  21. CALCIUM [Concomitant]
     Active Substance: CALCIUM

REACTIONS (16)
  - Pyrexia [Recovered/Resolved]
  - Cough [Not Recovered/Not Resolved]
  - Blood pressure diastolic increased [Unknown]
  - Blood pressure diastolic abnormal [Unknown]
  - White blood cell count decreased [Recovered/Resolved]
  - Nasopharyngitis [Not Recovered/Not Resolved]
  - Pneumonia [Not Recovered/Not Resolved]
  - Blood pressure increased [Unknown]
  - Fatigue [Recovered/Resolved]
  - Immune system disorder [Recovered/Resolved]
  - Infusion related reaction [Recovered/Resolved]
  - Oxygen saturation decreased [Unknown]
  - Fatigue [Not Recovered/Not Resolved]
  - Oxygen saturation decreased [Unknown]
  - Drug hypersensitivity [Recovered/Resolved]
  - Pneumonia fungal [Recovered/Resolved]

NARRATIVE: CASE EVENT DATE: 20150805
